FAERS Safety Report 21705113 (Version 2)
Quarter: 2022Q4

REPORT INFORMATION
  Report Type: Report from Study
  Country: IT (occurrence: IT)
  Receive Date: 20221209
  Receipt Date: 20221225
  Transmission Date: 20230112
  Serious: Yes (Other)
  Sender: FDA-Public Use
  Company Number: IT-MLMSERVICE-20221121-3930603-2

PATIENT
  Age: 85 Year
  Sex: Female

DRUGS (10)
  1. ASPIRIN [Suspect]
     Active Substance: ASPIRIN
     Indication: Product used for unknown indication
     Dosage: 100 MILLIGRAM, ONCE A DAY
     Route: 048
  2. ENALAPRIL [Suspect]
     Active Substance: ENALAPRIL
     Indication: Product used for unknown indication
     Dosage: 10 MILLIGRAM, ONCE A DAY
     Route: 048
  3. ACEROLA [Suspect]
     Active Substance: ACEROLA
     Indication: Product used for unknown indication
     Dosage: UNK
     Route: 048
  4. CAPECITABINE [Interacting]
     Active Substance: CAPECITABINE
     Indication: Metastases to liver
     Dosage: 31360 MILLIGRAM (CAPECITABINE (800 MG/M2) ADMINISTERED ON DAYS 1 TO 14 EVERY THREE WEEKS, 2240 MG OF
     Route: 048
  5. CAPECITABINE [Interacting]
     Active Substance: CAPECITABINE
     Indication: Colon cancer stage II
     Dosage: 800 MILLIGRAM/SQ. METER, TWO TIMES A DAY, ON DAY 1 TO DAY 14, EVERY THREE WEEKS
     Route: 065
  6. IRON [Suspect]
     Active Substance: IRON
     Indication: Product used for unknown indication
     Dosage: 319 MILLIGRAM, ONCE A DAY
     Route: 048
  7. FOLIC ACID [Suspect]
     Active Substance: FOLIC ACID
     Indication: Product used for unknown indication
     Dosage: UNK
  8. DIETARY SUPPLEMENT [Suspect]
     Active Substance: DIETARY SUPPLEMENT
     Indication: Product used for unknown indication
     Dosage: UNK
     Route: 065
  9. VITAMIN C [Suspect]
     Active Substance: ASCORBIC ACID
     Indication: Product used for unknown indication
     Dosage: UNK
     Route: 048
  10. TIPIRACIL HYDROCHLORIDE\TRIFLURIDINE [Concomitant]
     Active Substance: TIPIRACIL HYDROCHLORIDE\TRIFLURIDINE
     Indication: Product used for unknown indication
     Dosage: UNK
     Route: 065

REACTIONS (3)
  - Palmar-plantar erythrodysaesthesia syndrome [Recovered/Resolved]
  - Drug interaction [Recovered/Resolved]
  - Self-medication [Recovered/Resolved]
